FAERS Safety Report 12062407 (Version 1)
Quarter: 2016Q1

REPORT INFORMATION
  Report Type: Spontaneous
  Country: US (occurrence: US)
  Receive Date: 20160210
  Receipt Date: 20160210
  Transmission Date: 20160526
  Serious: No
  Sender: FDA-Public Use
  Company Number: US-ALLERGAN-1508405US

PATIENT
  Sex: Female

DRUGS (6)
  1. SQUALENE [Concomitant]
     Route: 061
  2. DIMETHICONE. [Concomitant]
     Active Substance: DIMETHICONE
     Route: 061
  3. BOTOX [Suspect]
     Active Substance: ONABOTULINUMTOXINA
     Indication: PRODUCT USED FOR UNKNOWN INDICATION
     Dosage: UNK UNK, SINGLE
  4. JUVEDERM VOLUMA XC [Suspect]
     Active Substance: HYALURONIC ACID\LIDOCAINE HYDROCHLORIDE
     Indication: PRODUCT USED FOR UNKNOWN INDICATION
  5. JUVEDERM ULTRA PLUS [Suspect]
     Active Substance: HYALURONIC ACID\LIDOCAINE HYDROCHLORIDE
     Indication: PRODUCT USED FOR UNKNOWN INDICATION
     Dosage: UNK UNK, SINGLE
  6. VITAMIN C [Concomitant]
     Active Substance: ASCORBIC ACID
     Route: 061

REACTIONS (4)
  - Pruritus [Recovered/Resolved]
  - Injection site injury [Recovered/Resolved]
  - Injection site pain [Unknown]
  - Drug ineffective [Unknown]
